FAERS Safety Report 5245109-8 (Version None)
Quarter: 2007Q1

REPORT INFORMATION
  Report Type: 
  Country: None (occurrence: None)
  Receive Date: 20070223
  Receipt Date: 20070209
  Transmission Date: 20070707
  Serious: Yes (Other)
  Sender: FDA-Public Use
  Company Number: PHEH2007US01599

PATIENT
  Age: 6 Year
  Sex: Male

DRUGS (3)
  1. DILANTIN [Suspect]
     Indication: CONVULSION
     Dates: start: 20061108, end: 20070118
  2. DILANTIN [Suspect]
     Dates: start: 20070120, end: 20070127
  3. TRILEPTAL [Suspect]
     Indication: EPILEPSY
     Dosage: 360 MG, BID
     Dates: start: 20061227

REACTIONS (9)
  - AMBLYOPIA [None]
  - CONVULSION [None]
  - DIPLOPIA [None]
  - HEADACHE [None]
  - HYPERMETROPIA [None]
  - NYSTAGMUS [None]
  - STRABISMUS [None]
  - VISION BLURRED [None]
  - VISUAL ACUITY REDUCED [None]
